FAERS Safety Report 4694703-1 (Version None)
Quarter: 2005Q2

REPORT INFORMATION
  Report Type: 
  Country: None (occurrence: None)
  Receive Date: 20050620
  Receipt Date: 20040614
  Transmission Date: 20051028
  Serious: Yes (Hospitalization, Other)
  Sender: FDA-Public Use
  Company Number: PHBS2004BR07756

PATIENT
  Age: 51 Year
  Sex: Male
  Weight: 160 kg

DRUGS (17)
  1. GEODON [Concomitant]
  2. FOLIC ACID [Concomitant]
     Indication: BLOOD HOMOCYSTEINE INCREASED
     Dosage: 5 MG/D
     Route: 048
  3. VALPROIC ACID [Concomitant]
     Indication: SCHIZOPHRENIA
     Dosage: 2000 MG/D
     Route: 048
  4. EXELON [Concomitant]
     Indication: MEMORY IMPAIRMENT
     Dosage: 6 MG, BID
     Route: 048
  5. HALOPERIDOL [Concomitant]
     Route: 065
  6. LEPONEX [Suspect]
     Indication: SCHIZOPHRENIA, PARANOID TYPE
     Dosage: 300 MG/D
     Route: 048
  7. LEPONEX [Suspect]
     Dosage: 500 MG/D
     Route: 048
     Dates: start: 20040721
  8. LEPONEX [Suspect]
     Dosage: 600 MG/D
     Route: 048
  9. LEPONEX [Suspect]
     Dosage: 400 MG/D
     Route: 048
  10. ALUMINUM HYDROXIDE GEL [Concomitant]
     Indication: ARTHRALGIA
     Route: 065
  11. MAGNESIUM HYDROXIDE TAB [Concomitant]
     Indication: ARTHRALGIA
     Route: 065
  12. OMEPRAZOLE [Concomitant]
     Indication: ARTHRALGIA
     Route: 065
  13. KETOPROFEN [Concomitant]
     Indication: ARTHRALGIA
  14. LITHIUM [Suspect]
     Dosage: 300 MG/D
     Route: 065
  15. LITHIUM [Suspect]
     Dosage: 600 MG/D
     Route: 065
     Dates: start: 20050601
  16. NORVASC [Concomitant]
     Indication: HYPERTENSION
     Dosage: 15 MG/D
     Route: 048
  17. MODURETIC 5-50 [Concomitant]
     Indication: HYPERTENSION
     Dosage: 50 MG, Q48H
     Route: 048

REACTIONS (14)
  - AMNESIA [None]
  - ARTHROPATHY [None]
  - COORDINATION ABNORMAL [None]
  - DELUSION [None]
  - DISTURBANCE IN ATTENTION [None]
  - HYPERTENSION [None]
  - INCREASED APPETITE [None]
  - MYOCLONUS [None]
  - PNEUMONIA [None]
  - SCHIZOPHRENIA [None]
  - THROMBOSIS [None]
  - VENOUS INSUFFICIENCY [None]
  - WEIGHT DECREASED [None]
  - WEIGHT INCREASED [None]
